FAERS Safety Report 6856218-1 (Version None)
Quarter: 2010Q2

REPORT INFORMATION
  Report Type: 
  Country: None (occurrence: None)
  Receive Date: 20100629
  Receipt Date: 20100521
  Transmission Date: 20101027
  Serious: No
  Sender: FDA-Public Use
  Company Number: US-WYE-H15322110

PATIENT
  Age: 53 Year
  Sex: Female
  Weight: 58.57 kg

DRUGS (4)
  1. PRISTIQ [Suspect]
     Indication: ANXIETY
     Dosage: 50 MG 1X PER 1 DAY
     Dates: start: 20100520
  2. PRISTIQ [Suspect]
     Indication: DEPRESSION
     Dosage: 50 MG 1X PER 1 DAY
     Dates: start: 20100520
  3. LORAZEPAM [Concomitant]
  4. BETASERON [Concomitant]

REACTIONS (4)
  - BLOOD PRESSURE ABNORMAL [None]
  - HEART RATE INCREASED [None]
  - PULSE ABNORMAL [None]
  - UNEVALUABLE EVENT [None]
